FAERS Safety Report 14968399 (Version 1)
Quarter: 2018Q2

REPORT INFORMATION
  Report Type: Spontaneous
  Country: US (occurrence: US)
  Receive Date: 20180511
  Receipt Date: 20180511
  Transmission Date: 20180711
  Serious: Yes (Life-Threatening, Hospitalization, Disabling, Other)
  Sender: FDA-Public Use
  Company Number: None

PATIENT
  Age: 86 Year
  Sex: Male
  Weight: 78.75 kg

DRUGS (4)
  1. IBUPROFEN. [Concomitant]
     Active Substance: IBUPROFEN
  2. MAGNESIUM [Concomitant]
     Active Substance: MAGNESIUM
  3. CALCIUM [Concomitant]
     Active Substance: CALCIUM
  4. SAPHRIS [Suspect]
     Active Substance: ASENAPINE MALEATE
     Indication: BIPOLAR DISORDER
     Dosage: ?          QUANTITY:2 SUBLINGUAL;?
     Route: 060
     Dates: start: 20140701, end: 20180220

REACTIONS (27)
  - Feeling abnormal [None]
  - Suicidal ideation [None]
  - Pain [None]
  - Loss of employment [None]
  - Aggression [None]
  - Drug dependence [None]
  - Loss of consciousness [None]
  - Middle insomnia [None]
  - Dysmorphism [None]
  - Tremor [None]
  - Mental disorder [None]
  - Feeling of despair [None]
  - Dyspnoea [None]
  - Cardiac disorder [None]
  - Quality of life decreased [None]
  - Decreased appetite [None]
  - Frustration tolerance decreased [None]
  - Depressed mood [None]
  - Obsessive-compulsive disorder [None]
  - Shock [None]
  - Muscle tightness [None]
  - Abdominal pain upper [None]
  - Anxiety [None]
  - Bipolar disorder [None]
  - Withdrawal syndrome [None]
  - Lacrimation increased [None]
  - Dyskinesia [None]

NARRATIVE: CASE EVENT DATE: 20170901
